FAERS Safety Report 24321073 (Version 2)
Quarter: 2024Q4

REPORT INFORMATION
  Report Type: Report from Study
  Country: CA (occurrence: CA)
  Receive Date: 20240915
  Receipt Date: 20241010
  Transmission Date: 20250115
  Serious: No
  Sender: CURRAX PHARMACEUTICALS
  Company Number: CA-BAUSCH-BL-2024-013464

PATIENT
  Sex: Female

DRUGS (2)
  1. CONTRAVE [Suspect]
     Active Substance: BUPROPION HYDROCHLORIDE\NALTREXONE HYDROCHLORIDE
     Indication: Weight control
     Dosage: 90/8 MG, 1 TABLET QAM
     Route: 048
     Dates: start: 20240828, end: 20240903
  2. CONTRAVE [Suspect]
     Active Substance: BUPROPION HYDROCHLORIDE\NALTREXONE HYDROCHLORIDE
     Dosage: 90/8 MG, 1 TABLET QAM, 1 TABLET QPM
     Route: 048
     Dates: start: 20240904, end: 2024

REACTIONS (4)
  - Faeces discoloured [Not Recovered/Not Resolved]
  - Abdominal discomfort [Recovering/Resolving]
  - Constipation [Recovering/Resolving]
  - Therapeutic product effect incomplete [Unknown]

NARRATIVE: CASE EVENT DATE: 20240101
